FAERS Safety Report 7827713-3 (Version None)
Quarter: 2011Q4

REPORT INFORMATION
  Report Type: 
  Country: None (occurrence: None)
  Receive Date: 20111019
  Receipt Date: 20111019
  Transmission Date: 20120403
  Serious: Yes (Hospitalization)
  Sender: FDA-Public Use
  Company Number: None

PATIENT
  Sex: Female
  Weight: 70.4 kg

DRUGS (3)
  1. CARBOPLATIN [Suspect]
     Indication: BREAST CANCER
     Dosage: 774MG Q3W IV
     Route: 042
     Dates: start: 20110718
  2. ABRAXANE [Suspect]
     Indication: BREAST CANCER
     Dosage: 173MG QW IV
     Route: 042
     Dates: start: 20110701
  3. HERCEPTIN [Suspect]
     Indication: BREAST CANCER
     Dosage: 141MG QW  IV
     Route: 042
     Dates: start: 20110701

REACTIONS (5)
  - SYNCOPE [None]
  - CONDITION AGGRAVATED [None]
  - BLOOD THYROID STIMULATING HORMONE INCREASED [None]
  - DIABETES MELLITUS [None]
  - ANAEMIA [None]
